FAERS Safety Report 4680191-8 (Version None)
Quarter: 2005Q2

REPORT INFORMATION
  Report Type: 
  Country: None (occurrence: None)
  Receive Date: 20050531
  Receipt Date: 20041118
  Transmission Date: 20051028
  Serious: Yes (Hospitalization)
  Sender: FDA-Public Use
  Company Number: FR-2004-035352

PATIENT
  Sex: Male

DRUGS (2)
  1. QUADRAMET [Suspect]
     Indication: METASTASES TO BONE
     Dosage: NOT RECEIVED
  2. ZOMETA [Suspect]
     Indication: METASTASES TO BONE
     Dosage: 4 MG, EVERY 4 WEEKS ONE DOSE, INTRAVENOUS
     Route: 042
     Dates: start: 20040924

REACTIONS (2)
  - PYREXIA [None]
  - URINARY TRACT INFECTION [None]
